FAERS Safety Report 7945450-1 (Version None)
Quarter: 2011Q4

REPORT INFORMATION
  Report Type: 
  Country: None (occurrence: None)
  Receive Date: 20111129
  Receipt Date: 20111121
  Transmission Date: 20120403
  Serious: Yes (Hospitalization)
  Sender: FDA-Public Use
  Company Number: US-ELI_LILLY_AND_COMPANY-US201111006894

PATIENT
  Age: 25 Year
  Sex: Male

DRUGS (2)
  1. HUMALOG [Suspect]
     Indication: DIABETES MELLITUS
     Dosage: 70 U, QD
     Route: 058
  2. HUMALOG [Suspect]
     Dosage: 70 U, QD
     Route: 058

REACTIONS (1)
  - HYPERGLYCAEMIA [None]
